FAERS Safety Report 9981426 (Version 1)
Quarter: 2014Q1

REPORT INFORMATION
  Report Type: Spontaneous
  Country: US (occurrence: US)
  Receive Date: 20140307
  Receipt Date: 20140307
  Transmission Date: 20141002
  Serious: Yes (Death, Other)
  Sender: FDA-Public Use
  Company Number: US-BRISTOL-MYERS SQUIBB COMPANY-20332185

PATIENT
  Age: 23 Year
  Sex: Male
  Weight: 34.92 kg

DRUGS (2)
  1. ABILIFY [Suspect]
     Dosage: INITIAL DOSE10MG
  2. CONCERTA [Suspect]
     Dosage: INITAL DOSE50MG

REACTIONS (2)
  - Toxicity to various agents [Fatal]
  - Sleep apnoea syndrome [Unknown]
